FAERS Safety Report 8675677 (Version 10)
Quarter: 2013Q2

REPORT INFORMATION
  Report Type: Spontaneous
  Country: US (occurrence: US)
  Receive Date: 20120720
  Receipt Date: 20130610
  Transmission Date: 20140414
  Serious: Yes (Hospitalization, Other)
  Sender: FDA-Public Use
  Company Number: US-MSD-1207USA003755

PATIENT
  Sex: Female
  Weight: 56.24 kg

DRUGS (4)
  1. FOSAMAX [Suspect]
     Indication: OSTEOPOROSIS
     Dosage: 70 MG, QW
     Route: 048
     Dates: start: 200109, end: 200812
  2. FOSAMAX PLUS D [Suspect]
     Indication: OSTEOPOROSIS
     Dosage: 70 MG QW
     Route: 048
     Dates: start: 20081220, end: 20110526
  3. PRILOSEC [Concomitant]
     Dosage: UNK
     Dates: start: 1990
  4. BENTYL [Concomitant]
     Indication: IRRITABLE BOWEL SYNDROME
     Dosage: UNK
     Dates: start: 1988

REACTIONS (32)
  - Femur fracture [Unknown]
  - Intramedullary rod insertion [Unknown]
  - Hip surgery [Unknown]
  - Femur fracture [Unknown]
  - Hip fracture [Unknown]
  - Post-traumatic stress disorder [Not Recovered/Not Resolved]
  - Asthma [Not Recovered/Not Resolved]
  - Chronic sinusitis [Not Recovered/Not Resolved]
  - Vulvovaginal dryness [Unknown]
  - Migraine [Not Recovered/Not Resolved]
  - Oral herpes [Unknown]
  - Sleep disorder [Unknown]
  - Skin irritation [Unknown]
  - Pain [Not Recovered/Not Resolved]
  - Musculoskeletal stiffness [Unknown]
  - Tension headache [Unknown]
  - Acne [Unknown]
  - Vitamin D deficiency [Unknown]
  - Tooth disorder [Unknown]
  - Bronchitis [Unknown]
  - Gastroenteritis [Unknown]
  - Osteopenia [Not Recovered/Not Resolved]
  - Injury [Unknown]
  - Steroid therapy [Unknown]
  - Tendonitis [Unknown]
  - Bursitis [Not Recovered/Not Resolved]
  - Bursitis [Not Recovered/Not Resolved]
  - Mitral valve prolapse [Unknown]
  - Fall [Unknown]
  - Contusion [Unknown]
  - Arthralgia [Unknown]
  - Medical device complication [Unknown]
